FAERS Safety Report 8117417-4 (Version None)
Quarter: 2012Q1

REPORT INFORMATION
  Report Type: 
  Country: None (occurrence: None)
  Receive Date: 20120207
  Receipt Date: 20120126
  Transmission Date: 20120608
  Serious: Yes (Other)
  Sender: FDA-Public Use
  Company Number: GB-AMGEN-GBRCT2011065634

PATIENT
  Age: 13 Year
  Sex: Female
  Weight: 51 kg

DRUGS (2)
  1. ETANERCEPT [Suspect]
     Indication: JUVENILE ARTHRITIS
     Dosage: 17.5 MG, 2 TIMES/WK
     Route: 058
     Dates: start: 20100819
  2. ETANERCEPT [Suspect]
     Dosage: 25 MG, QWK
     Route: 058
     Dates: start: 20110822

REACTIONS (1)
  - ECZEMA [None]
